FAERS Safety Report 24299830 (Version 11)
Quarter: 2025Q4

REPORT INFORMATION
  Report Type: Report from Study
  Country: US (occurrence: US)
  Receive Date: 20240909
  Receipt Date: 20251126
  Transmission Date: 20260119
  Serious: Yes (Hospitalization, Other)
  Sender: CSL BEHRING
  Company Number: US-BEH-2024178239

PATIENT
  Age: 68 Year
  Sex: Female
  Weight: 100.6 kg

DRUGS (34)
  1. ZEMAIRA [Suspect]
     Active Substance: .ALPHA.1-PROTEINASE INHIBITOR HUMAN
     Indication: Alpha-1 antitrypsin deficiency
     Route: 065
  2. ZEMAIRA [Suspect]
     Active Substance: .ALPHA.1-PROTEINASE INHIBITOR HUMAN
     Indication: Obesity
     Dosage: UNK UNK, QW
     Route: 042
  3. ZEMAIRA [Suspect]
     Active Substance: .ALPHA.1-PROTEINASE INHIBITOR HUMAN
     Dosage: 9768 MG
     Route: 042
  4. ZEMAIRA [Suspect]
     Active Substance: .ALPHA.1-PROTEINASE INHIBITOR HUMAN
     Dosage: 9768 MG
     Route: 042
  5. ALBUTEROL [Concomitant]
     Active Substance: ALBUTEROL
  6. FUROSEMIDE [Concomitant]
     Active Substance: FUROSEMIDE
     Dosage: 40 MG
  7. BUMETANIDE [Concomitant]
     Active Substance: BUMETANIDE
     Dosage: 0.5 MG
  8. CLOTRIMAZOLE [Concomitant]
     Active Substance: CLOTRIMAZOLE
     Dosage: 10 MG
  9. DEXAMETHASONE [Concomitant]
     Active Substance: DEXAMETHASONE
     Dosage: 6 MG
  10. ESTRACE [Concomitant]
     Active Substance: ESTRADIOL
     Dosage: 2 MG
  11. GLIMEPIRIDE [Concomitant]
     Active Substance: GLIMEPIRIDE
     Dosage: 2 MG
  12. HYDROCODONE [Concomitant]
     Active Substance: HYDROCODONE
  13. IPRATROPIUM [Concomitant]
     Active Substance: IPRATROPIUM
     Dosage: 0.02 %
  14. IPRATROPIUM [Concomitant]
     Active Substance: IPRATROPIUM
     Dosage: 0.03 %
  15. IPRATROPIUM [Concomitant]
     Active Substance: IPRATROPIUM
  16. LEVALBUTEROL [Concomitant]
     Active Substance: LEVALBUTEROL
  17. LOSARTAN POTASSIUM [Concomitant]
     Active Substance: LOSARTAN POTASSIUM
     Dosage: 50 MG
  18. PREGABALIN [Concomitant]
     Active Substance: PREGABALIN
     Dosage: 75 MG
  19. SALINE [Concomitant]
     Active Substance: SODIUM CHLORIDE
     Dosage: 0.65 %
  20. TRELEGY ELLIPTA [Concomitant]
     Active Substance: FLUTICASONE FUROATE\UMECLIDINIUM BROMIDE\VILANTEROL TRIFENATATE
  21. VENLAFAXINE [Concomitant]
     Active Substance: VENLAFAXINE HYDROCHLORIDE
  22. PANTOPRAZOLE SODIUM [Concomitant]
     Active Substance: PANTOPRAZOLE SODIUM
  23. GABAPENTIN [Concomitant]
     Active Substance: GABAPENTIN
     Dosage: 100 MG
  24. CEFACLOR [Concomitant]
     Active Substance: CEFACLOR
  25. CIPROFLOXACIN HYDROCHLORIDE [Concomitant]
     Active Substance: CIPROFLOXACIN HYDROCHLORIDE
  26. ROPINIROLE [Concomitant]
     Active Substance: ROPINIROLE
  27. LEVOFLOXACIN [Concomitant]
     Active Substance: LEVOFLOXACIN
  28. ALBUTEROL SULFATE [Concomitant]
     Active Substance: ALBUTEROL SULFATE
  29. HYDROCHLOROTHIAZIDE [Concomitant]
     Active Substance: HYDROCHLOROTHIAZIDE
  30. TRAZODONE [Concomitant]
     Active Substance: TRAZODONE HYDROCHLORIDE
     Dosage: 50 MG
  31. AZITHROMYCIN [Concomitant]
     Active Substance: AZITHROMYCIN
  32. LEVALBUTEROL [Concomitant]
     Active Substance: LEVALBUTEROL
     Dosage: 45 ?G
  33. FLUCONAZOLE [Concomitant]
     Active Substance: FLUCONAZOLE
  34. PREDNISONE [Concomitant]
     Active Substance: PREDNISONE

REACTIONS (19)
  - Respiratory tract infection [Unknown]
  - Lung disorder [Recovered/Resolved]
  - Staphylococcal infection [Recovered/Resolved]
  - Kidney infection [Recovered/Resolved]
  - Corneal dystrophy [Recovered/Resolved]
  - Cataract [Recovered/Resolved]
  - Hepatic cirrhosis [Unknown]
  - Chest pain [Recovered/Resolved]
  - Back pain [Recovered/Resolved]
  - Nasopharyngitis [Recovering/Resolving]
  - Dyspnoea [Recovering/Resolving]
  - Cough [Recovering/Resolving]
  - Sputum discoloured [Recovering/Resolving]
  - Off label use [Unknown]
  - Headache [Unknown]
  - Endodontic procedure [Unknown]
  - Alpha-1 antitrypsin deficiency [Unknown]
  - Sputum discoloured [Unknown]
  - Dyspnoea [Unknown]

NARRATIVE: CASE EVENT DATE: 20240824
